FAERS Safety Report 6004088-6 (Version None)
Quarter: 2008Q4

REPORT INFORMATION
  Report Type: 
  Country: None (occurrence: None)
  Receive Date: 20081216
  Receipt Date: 20081211
  Transmission Date: 20090506
  Serious: Yes (Life-Threatening, Hospitalization)
  Sender: FDA-Public Use
  Company Number: US-JNJFOC-20081203441

PATIENT
  Sex: Female

DRUGS (3)
  1. DOXIL [Suspect]
     Dosage: 3 INFUSIONS IN TOTAL.
     Route: 042
  2. DOXIL [Suspect]
     Dosage: 3 INFUSIONS IN TOTAL.
     Route: 042
  3. DOXIL [Suspect]
     Indication: OVARIAN CANCER
     Dosage: 3 INFUSIONS IN TOTAL.
     Route: 042

REACTIONS (1)
  - ORGANISING PNEUMONIA [None]
